FAERS Safety Report 4719349-8 (Version None)
Quarter: 2005Q3

REPORT INFORMATION
  Report Type: 
  Country: None (occurrence: None)
  Receive Date: 20050719
  Receipt Date: 20050713
  Transmission Date: 20060218
  Serious: Yes (Life-Threatening)
  Sender: FDA-Public Use
  Company Number: 2003JP007328

PATIENT
  Age: 70 Year
  Sex: Female
  Weight: 53.0255 kg

DRUGS (11)
  1. TACROLIMUS CAPSULES (TACROLIMUS) CAPSULE [Suspect]
     Indication: MYASTHENIA GRAVIS
     Dosage: 3.00 MG UID/QD ORAL
     Route: 048
     Dates: start: 20031009, end: 20031015
  2. PREDNISOLONE [Suspect]
     Indication: MYASTHENIA GRAVIS
     Dosage: SEE IMAGE
     Route: 048
     Dates: start: 20030919, end: 20031002
  3. PREDNISOLONE [Suspect]
     Indication: MYASTHENIA GRAVIS
     Dosage: SEE IMAGE
     Route: 048
     Dates: start: 20031003, end: 20031023
  4. PREDNISOLONE [Suspect]
     Indication: MYASTHENIA GRAVIS
     Dosage: SEE IMAGE
     Route: 048
     Dates: start: 20031024, end: 20031101
  5. PLETAL [Concomitant]
  6. ACTONEL [Concomitant]
  7. TOYOFAROL (ALFACALCIDOL) [Concomitant]
  8. LANSOPRAZOLE [Concomitant]
  9. MUCOSTA (REBAMIPIDE) [Concomitant]
  10. LORCAM (LORNOXICAM) [Concomitant]
  11. SELBEX (TEPRENONE) [Concomitant]

REACTIONS (11)
  - ANGINA PECTORIS [None]
  - CHEST DISCOMFORT [None]
  - COAGULATION TEST ABNORMAL [None]
  - DYSPNOEA [None]
  - FIBRIN D DIMER INCREASED [None]
  - HAEMATOCRIT DECREASED [None]
  - OXYGEN SATURATION DECREASED [None]
  - PCO2 INCREASED [None]
  - PO2 DECREASED [None]
  - PULMONARY EMBOLISM [None]
  - THROMBOTIC MICROANGIOPATHY [None]
